FAERS Safety Report 20510129 (Version 1)
Quarter: 2022Q1

REPORT INFORMATION
  Report Type: Spontaneous
  Country: PT (occurrence: PT)
  Receive Date: 20220224
  Receipt Date: 20220224
  Transmission Date: 20220423
  Serious: Yes (Other)
  Sender: FDA-Public Use
  Company Number: PT-LUPIN PHARMACEUTICALS INC.-2022-02323

PATIENT
  Age: 22 Year
  Sex: Male

DRUGS (16)
  1. LEVETIRACETAM [Suspect]
     Active Substance: LEVETIRACETAM
     Indication: Severe myoclonic epilepsy of infancy
     Dosage: 1500 MG, QD
     Route: 065
  2. TOPIRAMATE [Suspect]
     Active Substance: TOPIRAMATE
     Indication: Severe myoclonic epilepsy of infancy
     Dosage: 200 MG, QD
     Route: 065
  3. RUFINAMIDE [Suspect]
     Active Substance: RUFINAMIDE
     Indication: Severe myoclonic epilepsy of infancy
     Dosage: 400 MG, QD
     Route: 065
  4. CLOBAZAM [Suspect]
     Active Substance: CLOBAZAM
     Indication: Severe myoclonic epilepsy of infancy
     Dosage: 30 MG, QD
     Route: 065
  5. CLOBAZAM [Suspect]
     Active Substance: CLOBAZAM
     Dosage: 40 MG, QD
     Route: 065
  6. VALPROIC ACID [Suspect]
     Active Substance: VALPROIC ACID
     Indication: Severe myoclonic epilepsy of infancy
     Dosage: 2000 MG, QD
     Route: 065
  7. VALPROIC ACID [Suspect]
     Active Substance: VALPROIC ACID
     Dosage: 1600 MG, QD
     Route: 065
  8. VALPROIC ACID [Suspect]
     Active Substance: VALPROIC ACID
     Dosage: 800 MG, QD
     Route: 065
  9. STIRIPENTOL [Suspect]
     Active Substance: STIRIPENTOL
     Indication: Severe myoclonic epilepsy of infancy
     Dosage: 2000 MG, QD
     Route: 065
  10. FELBAMATE [Suspect]
     Active Substance: FELBAMATE
     Indication: Severe myoclonic epilepsy of infancy
     Dosage: 1800 MG, QD
     Route: 065
  11. ZONISAMIDE [Suspect]
     Active Substance: ZONISAMIDE
     Indication: Severe myoclonic epilepsy of infancy
     Dosage: 100 MG, QD
     Route: 065
  12. PERAMPANEL [Suspect]
     Active Substance: PERAMPANEL
     Indication: Severe myoclonic epilepsy of infancy
     Dosage: 4 MG, QD
     Route: 065
  13. PHENOBARBITAL [Suspect]
     Active Substance: PHENOBARBITAL
     Indication: Severe myoclonic epilepsy of infancy
     Dosage: 100 MG, QD
     Route: 065
  14. ETHOSUXIMIDE [Suspect]
     Active Substance: ETHOSUXIMIDE
     Indication: Severe myoclonic epilepsy of infancy
     Dosage: 1000 MG, QD
     Route: 065
  15. ESLICARBAZEPINE [Concomitant]
     Active Substance: ESLICARBAZEPINE
     Indication: Severe myoclonic epilepsy of infancy
     Dosage: 200 MG, QD
     Route: 065
  16. ESLICARBAZEPINE [Concomitant]
     Active Substance: ESLICARBAZEPINE
     Dosage: 400 MG, QD
     Route: 065

REACTIONS (1)
  - Drug ineffective [Unknown]
